FAERS Safety Report 8313942-1 (Version None)
Quarter: 2012Q2

REPORT INFORMATION
  Report Type: 
  Country: None (occurrence: None)
  Receive Date: 20120426
  Receipt Date: 20120426
  Transmission Date: 20120825
  Serious: Yes (Life-Threatening)
  Sender: FDA-Public Use
  Company Number: None

PATIENT
  Age: 9 Year
  Sex: Male
  Weight: 34.473 kg

DRUGS (3)
  1. VERAPAMIL HCL [Suspect]
     Indication: VENTRICULAR TACHYCARDIA
     Dosage: 1 TAB
     Route: 048
     Dates: start: 20111223, end: 20120421
  2. VERAPAMIL HCL [Suspect]
     Indication: VENTRICULAR TACHYCARDIA
     Dosage: 1 TAB
     Route: 048
  3. VERAPAMIL HCL [Concomitant]
     Indication: VENTRICULAR TACHYCARDIA
     Dosage: 1 TAB
     Route: 048
     Dates: start: 20120422, end: 20120422

REACTIONS (3)
  - CHEST PAIN [None]
  - SUPRAVENTRICULAR TACHYCARDIA [None]
  - MEDICATION ERROR [None]
